FAERS Safety Report 23712959 (Version 1)
Quarter: 2024Q2

REPORT INFORMATION
  Report Type: Spontaneous
  Country: US (occurrence: None)
  Receive Date: 20240405
  Receipt Date: 20240405
  Transmission Date: 20240716
  Serious: Yes (Hospitalization)
  Sender: FDA-Public Use
  Company Number: None

PATIENT
  Sex: Female

DRUGS (7)
  1. GAMMAGARD LIQUID [Suspect]
     Active Substance: HUMAN IMMUNOGLOBULIN G
     Indication: Systemic lupus erythematosus
     Dosage: 10 GM EVERY 2 WEEKS INTRAVENOUSLY
     Route: 042
     Dates: start: 202205
  2. BACTERIOSTATIC WATER [Suspect]
     Active Substance: WATER
     Indication: Drug therapy
     Dosage: 60ML EVERY 2 WEEKS INTRAVENOUSLY
     Route: 042
     Dates: start: 202205
  3. HEPARIN L/L FLUSH-SYRINGE [Concomitant]
  4. EPINEPHRINE [Concomitant]
     Active Substance: EPINEPHRINE
  5. DROXIDOPA [Concomitant]
     Active Substance: DROXIDOPA
  6. METHYLPRED SOD SUCC SDV [Concomitant]
  7. DIPHENHYDRAMINE [Concomitant]
     Active Substance: DIPHENHYDRAMINE

REACTIONS (1)
  - Cystitis [None]
